FAERS Safety Report 12340808 (Version 1)
Quarter: 2016Q2

REPORT INFORMATION
  Report Type: Spontaneous
  Country: IT (occurrence: IT)
  Receive Date: 20160506
  Receipt Date: 20160506
  Transmission Date: 20160815
  Serious: Yes (Death, Other)
  Sender: FDA-Public Use
  Company Number: IT-JNJFOC-20150217965

PATIENT

DRUGS (1)
  1. DOXORUBICIN HYDROCHLORIDE. [Suspect]
     Active Substance: DOXORUBICIN HYDROCHLORIDE
     Indication: SOFT TISSUE SARCOMA
     Route: 042

REACTIONS (20)
  - Pain in extremity [Unknown]
  - Thrombosis [Unknown]
  - Blood creatinine increased [Unknown]
  - Toxicity to various agents [Unknown]
  - Oedema peripheral [Unknown]
  - Lymphocele [Unknown]
  - Peripheral motor neuropathy [Unknown]
  - Peripheral sensory neuropathy [Unknown]
  - Compartment syndrome [Unknown]
  - Toxicity to various agents [Fatal]
  - Thrombocytopenia [Unknown]
  - Nausea [Unknown]
  - Pneumonitis [Unknown]
  - Rash [Unknown]
  - Product use issue [Unknown]
  - Leukopenia [Unknown]
  - Vomiting [Unknown]
  - Urinary tract infection [Unknown]
  - Cellulitis [Unknown]
  - Phlebitis [Unknown]
